FAERS Safety Report 13512478 (Version 1)
Quarter: 2017Q2

REPORT INFORMATION
  Report Type: Spontaneous
  Country: US (occurrence: US)
  Receive Date: 20170504
  Receipt Date: 20170504
  Transmission Date: 20170830
  Serious: No
  Sender: FDA-Public Use
  Company Number: None

PATIENT
  Age: 87 Year
  Sex: Female

DRUGS (5)
  1. OCALIVA [Suspect]
     Active Substance: OBETICHOLIC ACID
     Indication: BILIARY CIRRHOSIS PRIMARY
     Route: 048
     Dates: start: 20170210
  2. METHOTREXATE. [Concomitant]
     Active Substance: METHOTREXATE
  3. LISINOPRIL. [Concomitant]
     Active Substance: LISINOPRIL
  4. LEVOTHYROXIN [Concomitant]
     Active Substance: LEVOTHYROXINE
  5. URSODIOL. [Concomitant]
     Active Substance: URSODIOL

REACTIONS (3)
  - Drug dose omission [None]
  - Nausea [None]
  - Pruritus [None]

NARRATIVE: CASE EVENT DATE: 201704
